FAERS Safety Report 18403743 (Version 2)
Quarter: 2020Q4

REPORT INFORMATION
  Report Type: Spontaneous
  Country: JP (occurrence: JP)
  Receive Date: 20201020
  Receipt Date: 20201119
  Transmission Date: 20210114
  Serious: Yes (Hospitalization)
  Sender: FDA-Public Use
  Company Number: NVSJ2020JP010416

PATIENT
  Age: 61 Year
  Sex: Female
  Weight: 38 kg

DRUGS (7)
  1. METHYCOBAL [Suspect]
     Active Substance: METHYLCOBALAMIN
     Indication: TONGUE ROUGH
     Dosage: UNK
     Route: 048
     Dates: start: 20200618, end: 20200725
  2. TRINOSIN [Suspect]
     Active Substance: ADENOSINE TRIPHOSPHATE DISODIUM
     Indication: TONGUE ROUGH
     Dosage: UNK
     Route: 048
     Dates: start: 20200618, end: 20200725
  3. TEGRETOL [Suspect]
     Active Substance: CARBAMAZEPINE
     Indication: TONGUE ROUGH
     Dosage: UNK
     Route: 048
     Dates: start: 20200625, end: 20200725
  4. TEGRETOL [Suspect]
     Active Substance: CARBAMAZEPINE
     Indication: TONGUE DISCOMFORT
  5. METHYCOBAL [Suspect]
     Active Substance: METHYLCOBALAMIN
     Indication: TONGUE DISCOMFORT
  6. TRINOSIN [Suspect]
     Active Substance: ADENOSINE TRIPHOSPHATE DISODIUM
     Indication: TONGUE DISCOMFORT
  7. LIMAPROST [Concomitant]
     Active Substance: LIMAPROST
     Indication: PRODUCT USED FOR UNKNOWN INDICATION
     Dosage: UNK
     Route: 065

REACTIONS (1)
  - Stevens-Johnson syndrome [Recovering/Resolving]

NARRATIVE: CASE EVENT DATE: 20200726
